FAERS Safety Report 6973275-2 (Version None)
Quarter: 2010Q3

REPORT INFORMATION
  Report Type: 
  Country: None (occurrence: None)
  Receive Date: 20100824
  Receipt Date: 20100520
  Transmission Date: 20110219
  Serious: No
  Sender: FDA-Public Use
  Company Number: 308998

PATIENT
  Age: 53 Year
  Sex: Female

DRUGS (3)
  1. VICTOZA [Suspect]
     Indication: TYPE 2 DIABETES MELLITUS
     Dosage: 0.6 MG,QD, SUBCUTANEOUS
     Route: 058
     Dates: start: 20100518
  2. LEVEMIR [Concomitant]
  3. SYMLIN (PARAMLINTIDE ACETATE) [Concomitant]

REACTIONS (2)
  - DECREASED APPETITE [None]
  - HEADACHE [None]
